FAERS Safety Report 5376488-9 (Version None)
Quarter: 2007Q3

REPORT INFORMATION
  Report Type: 
  Country: None (occurrence: None)
  Receive Date: 20070702
  Receipt Date: 20070620
  Transmission Date: 20080115
  Serious: Yes (Hospitalization)
  Sender: FDA-Public Use
  Company Number: FR-PFIZER INC-2007053394

PATIENT
  Age: 36 Year
  Sex: Female

DRUGS (5)
  1. ZOLOFT [Suspect]
  2. DIAZEPAM [Suspect]
  3. DEPAMIDE [Suspect]
  4. TIAPRIDE [Suspect]
  5. ZOLPIDEM TARTRATE [Suspect]

REACTIONS (2)
  - GROWTH RETARDATION [None]
  - PSYCHOMOTOR SKILLS IMPAIRED [None]
